FAERS Safety Report 8241348-2 (Version None)
Quarter: 2012Q1

REPORT INFORMATION
  Report Type: 
  Country: None (occurrence: None)
  Receive Date: 20120328
  Receipt Date: 20120320
  Transmission Date: 20120608
  Serious: Yes (Hospitalization, Other)
  Sender: FDA-Public Use
  Company Number: PHHY2012IT024824

PATIENT
  Sex: Female

DRUGS (1)
  1. LORAZEPAM [Suspect]
     Dosage: 10 OT (POSOLOGIC UNIT)
     Route: 048
     Dates: start: 20091224, end: 20091224

REACTIONS (4)
  - INTENTIONAL OVERDOSE [None]
  - BRADYPHRENIA [None]
  - SOPOR [None]
  - BRADYKINESIA [None]
